FAERS Safety Report 14341764 (Version 2)
Quarter: 2018Q1

REPORT INFORMATION
  Report Type: Spontaneous
  Country: PL (occurrence: PL)
  Receive Date: 20180102
  Receipt Date: 20180202
  Transmission Date: 20180509
  Serious: Yes (Hospitalization, Other)
  Sender: FDA-Public Use
  Company Number: PL-AUROBINDO-AUR-APL-2017-47211

PATIENT
  Age: 35 Year
  Sex: Female

DRUGS (8)
  1. AMOXICILLIN+CLAVULANIC ACID [Suspect]
     Active Substance: AMOXICILLIN\CLAVULANIC ACID
     Indication: PRODUCT USED FOR UNKNOWN INDICATION
     Dosage: 1000MG THREE TIMES A DAY
     Route: 065
  2. AZITHROMYCIN ANHYDROUS. [Suspect]
     Active Substance: AZITHROMYCIN ANHYDROUS
     Indication: PNEUMONIA
     Dosage: 500 MG, DAILY
     Route: 065
  3. CEFADROXIL. [Suspect]
     Active Substance: CEFADROXIL
     Indication: PNEUMONIA
     Dosage: 500 MG, TWO TIMES A DAY
     Route: 065
  4. CEFTRIAXONE. [Suspect]
     Active Substance: CEFTRIAXONE
     Route: 065
  5. CEFTRIAXONE. [Suspect]
     Active Substance: CEFTRIAXONE
     Indication: PNEUMONIA
     Dosage: 1000 MG, DAILY
     Route: 065
  6. CLAVULANIC ACID [Suspect]
     Active Substance: CLAVULANIC ACID
     Indication: PNEUMONIA
     Dosage: 200 MG, 3 TIMES A DAY
     Route: 065
  7. AMOXICILLIN. [Suspect]
     Active Substance: AMOXICILLIN
     Indication: PNEUMONIA
     Dosage: 1000 MG, 3 TIMES A DAY
     Route: 065
  8. PREDNISOLONE. [Concomitant]
     Active Substance: PREDNISOLONE
     Indication: STEROID THERAPY
     Dosage: 120 MG, DAILY
     Route: 065

REACTIONS (23)
  - Paraesthesia [Recovered/Resolved]
  - Intentional product misuse [Unknown]
  - Pharyngitis streptococcal [Unknown]
  - Pneumonia [Unknown]
  - Stomatococcal infection [Unknown]
  - Headache [Recovered/Resolved]
  - Staphylococcal infection [Unknown]
  - Condition aggravated [Recovered/Resolved]
  - Neisseria infection [Unknown]
  - Drug resistance [Unknown]
  - Bacterial infection [Recovered/Resolved]
  - Pyogenic granuloma [Recovered/Resolved]
  - Asthenia [Recovered/Resolved]
  - Cold agglutinins positive [Recovered/Resolved]
  - Raynaud^s phenomenon [Recovered/Resolved]
  - Meningism [Unknown]
  - Streptococcal infection [Unknown]
  - Periodontitis [Recovered/Resolved]
  - Immunodeficiency common variable [Unknown]
  - Haemorrhage [Recovered/Resolved]
  - Veillonella infection [Unknown]
  - Pneumococcal infection [Unknown]
  - Neuropathy peripheral [Unknown]
